FAERS Safety Report 6007145-3 (Version None)
Quarter: 2008Q4

REPORT INFORMATION
  Report Type: 
  Country: None (occurrence: None)
  Receive Date: 20081217
  Receipt Date: 20080128
  Transmission Date: 20090506
  Serious: No
  Sender: FDA-Public Use
  Company Number: US-ASTRAZENECA-2008UW02010

PATIENT
  Age: 66 Year
  Sex: Female
  Weight: 53.5 kg

DRUGS (6)
  1. CRESTOR [Suspect]
     Indication: BLOOD CHOLESTEROL INCREASED
     Route: 048
  2. NORVASC [Concomitant]
  3. ESTRES CREAM [Concomitant]
  4. ACTONEL [Concomitant]
  5. XANAX [Concomitant]
  6. RESTORIL [Concomitant]

REACTIONS (1)
  - ALOPECIA [None]
